FAERS Safety Report 25634810 (Version 1)
Quarter: 2025Q3

REPORT INFORMATION
  Report Type: Spontaneous
  Country: EU (occurrence: EU)
  Receive Date: 20250801
  Receipt Date: 20250801
  Transmission Date: 20251021
  Serious: Yes (Other)
  Sender: MYLAN
  Company Number: None

PATIENT
  Age: 23 Year
  Sex: Female

DRUGS (8)
  1. KETOPROFEN [Suspect]
     Active Substance: KETOPROFEN
     Indication: Inflammation
     Dates: start: 20250624, end: 20250629
  2. KETOPROFEN [Suspect]
     Active Substance: KETOPROFEN
     Route: 048
     Dates: start: 20250624, end: 20250629
  3. KETOPROFEN [Suspect]
     Active Substance: KETOPROFEN
     Route: 048
     Dates: start: 20250624, end: 20250629
  4. KETOPROFEN [Suspect]
     Active Substance: KETOPROFEN
     Dates: start: 20250624, end: 20250629
  5. SERTRALINE [Suspect]
     Active Substance: SERTRALINE HYDROCHLORIDE
     Indication: Inflammation
     Dates: start: 20220615, end: 20250629
  6. SERTRALINE [Suspect]
     Active Substance: SERTRALINE HYDROCHLORIDE
     Route: 048
     Dates: start: 20220615, end: 20250629
  7. SERTRALINE [Suspect]
     Active Substance: SERTRALINE HYDROCHLORIDE
     Route: 048
     Dates: start: 20220615, end: 20250629
  8. SERTRALINE [Suspect]
     Active Substance: SERTRALINE HYDROCHLORIDE
     Dates: start: 20220615, end: 20250629

REACTIONS (2)
  - Haematoma [Not Recovered/Not Resolved]
  - Anaemia [Not Recovered/Not Resolved]

NARRATIVE: CASE EVENT DATE: 20250615
